FAERS Safety Report 9805915 (Version 2)
Quarter: 2014Q1

REPORT INFORMATION
  Report Type: Report from Study
  Country: BD (occurrence: BD)
  Receive Date: 20140109
  Receipt Date: 20140109
  Transmission Date: 20141002
  Serious: Yes (Death)
  Sender: FDA-Public Use
  Company Number: PHHY2013BD150817

PATIENT
  Age: 75 Year
  Sex: Male

DRUGS (3)
  1. EXELON [Suspect]
     Indication: DEMENTIA
     Dosage: 6 MG, DAILY
     Route: 048
     Dates: start: 201001
  2. ANTIHYPERTENSIVE DRUGS [Concomitant]
     Indication: HYPERTENSION
     Dosage: UNK UKN, UNK
  3. TEGRETOL [Concomitant]
     Indication: EPILEPSY

REACTIONS (4)
  - Hypotension [Fatal]
  - Blood glucose decreased [Fatal]
  - Aphagia [Fatal]
  - Asthenia [Fatal]
